FAERS Safety Report 18735628 (Version 1)
Quarter: 2021Q1

REPORT INFORMATION
  Report Type: Report from Study
  Country: US (occurrence: US)
  Receive Date: 20210113
  Receipt Date: 20210113
  Transmission Date: 20210419
  Serious: Yes (Life-Threatening, Hospitalization, Other)
  Sender: FDA-Public Use
  Company Number: US-BRISTOL-MYERS SQUIBB COMPANY-BMS-2019-071130

PATIENT
  Age: 69 Year
  Sex: Male
  Weight: 82.2 kg

DRUGS (2)
  1. EGANELISIB. [Suspect]
     Active Substance: EGANELISIB
     Indication: NON-SMALL CELL LUNG CANCER
     Dosage: 40 MILLIGRAM, QD
     Route: 048
     Dates: start: 20190501, end: 20190625
  2. NIVOLUMAB [Suspect]
     Active Substance: NIVOLUMAB
     Indication: NON-SMALL CELL LUNG CANCER
     Dosage: 240 MILLIGRAM, Q2WK
     Route: 042
     Dates: start: 20190501, end: 20190612

REACTIONS (3)
  - Respiratory failure [Not Recovered/Not Resolved]
  - Atelectasis [Not Recovered/Not Resolved]
  - Klebsiella sepsis [Unknown]

NARRATIVE: CASE EVENT DATE: 20190701
